FAERS Safety Report 14423787 (Version 6)
Quarter: 2018Q2

REPORT INFORMATION
  Report Type: Spontaneous
  Country: US (occurrence: US)
  Receive Date: 20180123
  Receipt Date: 20180405
  Transmission Date: 20180711
  Serious: No
  Sender: FDA-Public Use
  Company Number: US-PFIZER INC-2018027131

PATIENT
  Age: 78 Year
  Sex: Female
  Weight: 110 kg

DRUGS (1)
  1. IBRANCE [Suspect]
     Active Substance: PALBOCICLIB
     Indication: BREAST CANCER METASTATIC
     Dosage: 125 MG, CYCLIC (DAY 1-21 Q 28 DAYS)
     Route: 048
     Dates: start: 20180112

REACTIONS (11)
  - Dysphonia [Unknown]
  - Nausea [Unknown]
  - Nasal congestion [Unknown]
  - Drug dose omission [Unknown]
  - Eye allergy [Unknown]
  - Eye infection [Unknown]
  - Dysgeusia [Unknown]
  - Fatigue [Unknown]
  - Memory impairment [Unknown]
  - Arthralgia [Unknown]
  - Somnolence [Unknown]

NARRATIVE: CASE EVENT DATE: 2018
